FAERS Safety Report 8914711 (Version 7)
Quarter: 2014Q2

REPORT INFORMATION
  Report Type: Report from Study
  Country: US (occurrence: US)
  Receive Date: 20121119
  Receipt Date: 20140407
  Transmission Date: 20141212
  Serious: Yes (Life-Threatening, Hospitalization, Other)
  Sender: FDA-Public Use
  Company Number: US-PFIZER INC-2011177060

PATIENT
  Age: 46 Year
  Sex: Female
  Weight: 139.9 kg

DRUGS (22)
  1. BOSUTINIB [Suspect]
     Indication: CHRONIC MYELOID LEUKAEMIA
     Dosage: 500 MG, 1X/DAY
     Route: 048
     Dates: start: 20070803
  2. BOSUTINIB [Suspect]
     Dosage: 400 MG, DAILY
     Route: 048
  3. MIRAPEX [Concomitant]
     Indication: TREMOR
     Dosage: 0.125 MG, 1X/DAY AT BEDTIME
     Route: 048
  4. DETROL LA [Concomitant]
     Indication: URINARY INCONTINENCE
     Dosage: 4 MG, 1X/DAY
  5. WELCHOL [Concomitant]
     Indication: HYPERCHOLESTEROLAEMIA
     Dosage: 1875 UNK, 2X/DAY
     Route: 048
  6. CARDIZEM CD [Concomitant]
     Indication: HYPERTENSION
     Dosage: 180 MG, 1X/DAY
  7. FENOFIBRATE [Concomitant]
     Indication: HYPERCHOLESTEROLAEMIA
     Dosage: 130 MG, 1X/DAY
  8. CRESTOR [Concomitant]
     Indication: HYPERCHOLESTEROLAEMIA
     Dosage: 20 MG, 1X/DAY
  9. NUVIGIL [Concomitant]
     Indication: SLEEP APNOEA SYNDROME
     Dosage: 250 MG, 1X/DAY
  10. CYMBALTA [Concomitant]
     Indication: DEPRESSION
     Dosage: 60 MG, 1X/DAY
  11. LYRICA [Concomitant]
     Indication: NEURALGIA
     Dosage: 100 MG, 1X/DAY
  12. ZOLPIDEM [Concomitant]
     Indication: INSOMNIA
     Dosage: 10 MG, 1X/DAY AT BEDTIME
     Route: 048
  13. LASIX [Concomitant]
     Indication: EFFUSION
     Dosage: 40 MG, 1X/DAY
  14. HYDROCHLOROTHIAZIDE [Concomitant]
     Indication: HYPERTENSION
     Dosage: 25 UNK, 1X/DAY
  15. AMARYL [Concomitant]
     Indication: DIABETES MELLITUS
     Dosage: 4 MG,  DAILY
     Route: 048
  16. LANTUS [Concomitant]
     Indication: DIABETES MELLITUS
     Dosage: 15 IU, 1X/DAY AT NIGHT
     Route: 058
  17. LEVOTHYROXINE [Concomitant]
     Indication: HYPOTHYROIDISM
     Dosage: 50 UG, 1X/DAY
  18. JOLIVETTE [Concomitant]
     Indication: CONTRACEPTION
     Dosage: 1 DF, DAILY
     Route: 048
  19. ACTOS [Concomitant]
     Indication: DIABETES MELLITUS
     Dosage: 30 MG, 1X/DAY
  20. JANUVIA [Concomitant]
     Indication: DIABETES MELLITUS
     Dosage: 100 MG, 1X/DAY
  21. KEFLEX [Concomitant]
     Indication: INFECTION PROPHYLAXIS
     Dosage: 500 MG, 4X/DAY
     Route: 048
  22. ASPIRIN [Concomitant]
     Indication: PROPHYLAXIS
     Dosage: 325 MG, 1X/DAY
     Route: 048

REACTIONS (10)
  - Pleural effusion [Recovered/Resolved]
  - Pericardial effusion [Recovered/Resolved]
  - Pleural effusion [Recovered/Resolved]
  - Pericardial effusion [Recovered/Resolved]
  - Cardiac failure congestive [Recovered/Resolved]
  - Cardiac failure congestive [Recovered/Resolved]
  - Renal failure acute [Recovered/Resolved]
  - Renal failure acute [Recovered/Resolved]
  - Dyspnoea [Recovered/Resolved]
  - Dyspnoea [Recovered/Resolved]
